FAERS Safety Report 12313724 (Version 1)
Quarter: 2016Q2

REPORT INFORMATION
  Report Type: Spontaneous
  Country: FR (occurrence: FR)
  Receive Date: 20160428
  Receipt Date: 20160428
  Transmission Date: 20160815
  Serious: Yes (Hospitalization)
  Sender: FDA-Public Use
  Company Number: FR-CONCORDIA PHARMACEUTICALS INC.-CO-PL-FR-2016-198

PATIENT
  Age: 51 Year
  Sex: Female

DRUGS (14)
  1. TRAMADOL. [Concomitant]
     Active Substance: TRAMADOL
  2. CYMBALTA [Concomitant]
     Active Substance: DULOXETINE HYDROCHLORIDE
  3. LASILIX [Concomitant]
     Active Substance: FUROSEMIDE
  4. RAMIPRIL. [Concomitant]
     Active Substance: RAMIPRIL
  5. ABILIFY [Concomitant]
     Active Substance: ARIPIPRAZOLE
  6. XEROQUEL [Concomitant]
     Active Substance: QUETIAPINE FUMARATE
  7. PLAQUENIL [Suspect]
     Active Substance: HYDROXYCHLOROQUINE SULFATE
     Indication: SYSTEMIC LUPUS ERYTHEMATOSUS
     Route: 048
     Dates: end: 20160218
  8. ALDACTONE [Concomitant]
     Active Substance: SPIRONOLACTONE
  9. METOJECT [Concomitant]
     Active Substance: METHOTREXATE SODIUM
  10. SPECIAFOLDINE [Concomitant]
     Active Substance: FOLIC ACID
  11. DISULONE [Concomitant]
     Active Substance: DAPSONE\FERROUS OXALATE
  12. PARACETAMOL [Concomitant]
     Active Substance: ACETAMINOPHEN
  13. THERALENE [Concomitant]
     Active Substance: TRIMEPRAZINE
  14. CORTANCYL [Concomitant]
     Active Substance: PREDNISONE

REACTIONS (1)
  - Cardiomyopathy [None]

NARRATIVE: CASE EVENT DATE: 20160111
